FAERS Safety Report 17739607 (Version 4)
Quarter: 2021Q3

REPORT INFORMATION
  Report Type: Report from Study
  Country: US (occurrence: US)
  Receive Date: 20200504
  Receipt Date: 20210805
  Transmission Date: 20211014
  Serious: Yes (Hospitalization)
  Sender: FDA-Public Use
  Company Number: US-BIOGEN-2020BI00868214

PATIENT
  Age: 47 Year
  Sex: Female

DRUGS (3)
  1. TYSABRI [Suspect]
     Active Substance: NATALIZUMAB
     Route: 065
     Dates: start: 20140417, end: 20210324
  2. TYSABRI [Suspect]
     Active Substance: NATALIZUMAB
     Route: 065
     Dates: start: 20140417, end: 20210324
  3. TYSABRI [Suspect]
     Active Substance: NATALIZUMAB
     Indication: MULTIPLE SCLEROSIS
     Route: 065
     Dates: start: 20140417

REACTIONS (3)
  - Staphylococcal infection [Recovered/Resolved]
  - Fatigue [Not Recovered/Not Resolved]
  - Subcutaneous abscess [Unknown]

NARRATIVE: CASE EVENT DATE: 20200326
